FAERS Safety Report 15110125 (Version 5)
Quarter: 2020Q3

REPORT INFORMATION
  Report Type: Report from Study
  Country: None (occurrence: DE)
  Receive Date: 20180705
  Receipt Date: 20200715
  Transmission Date: 20201102
  Serious: Yes (Death, Life-Threatening, Hospitalization, Other)
  Sender: FDA-Public Use
  Company Number: DE-ABBVIE-16K-062-1774889-00

PATIENT
  Age: 64 Year
  Sex: Female
  Weight: 82 kg

DRUGS (9)
  1. HUMIRA [Suspect]
     Active Substance: ADALIMUMAB
     Route: 058
     Dates: start: 20180612
  2. LEVOTHYROXINE. [Concomitant]
     Active Substance: LEVOTHYROXINE
     Indication: THYROIDECTOMY
  3. HUMIRA [Suspect]
     Active Substance: ADALIMUMAB
     Indication: PRODUCT USED FOR UNKNOWN INDICATION
     Route: 058
     Dates: start: 20130930, end: 20140416
  4. TRIMIPRAMIN [Concomitant]
     Active Substance: TRIMIPRAMINE
     Indication: ANXIETY
  5. LANTAREL [Concomitant]
     Active Substance: METHOTREXATE SODIUM
     Indication: PSORIASIS
     Route: 058
     Dates: start: 20140812, end: 20150715
  6. METFORMIN [Concomitant]
     Active Substance: METFORMIN HYDROCHLORIDE
     Indication: TYPE 2 DIABETES MELLITUS
  7. COSENTYX [Suspect]
     Active Substance: SECUKINUMAB
     Indication: PSORIASIS
     Route: 058
     Dates: start: 20161004, end: 20170406
  8. ENBREL [Concomitant]
     Active Substance: ETANERCEPT
     Indication: PRODUCT USED FOR UNKNOWN INDICATION
     Route: 058
     Dates: start: 20140416, end: 20140612
  9. KYNTHEUM [Concomitant]
     Active Substance: BRODALUMAB
     Indication: PRODUCT USED FOR UNKNOWN INDICATION
     Dates: start: 20180328, end: 20180612

REACTIONS (21)
  - Deafness [Unknown]
  - Metastases to central nervous system [Not Recovered/Not Resolved]
  - Metastases to lymph nodes [Not Recovered/Not Resolved]
  - Helicobacter gastritis [Unknown]
  - Metastases to bone [Not Recovered/Not Resolved]
  - Secondary immunodeficiency [Unknown]
  - Pneumonia [Unknown]
  - Metastasis [Unknown]
  - Death [Fatal]
  - Atrial fibrillation [Recovered/Resolved]
  - Laboratory test abnormal [Unknown]
  - Rectal polyp [Unknown]
  - Atrial fibrillation [Recovered/Resolved]
  - Adrenal adenoma [Unknown]
  - Disorientation [Unknown]
  - Nausea [Unknown]
  - Osteolysis [Unknown]
  - Large intestine polyp [Unknown]
  - Diabetes mellitus [Not Recovered/Not Resolved]
  - Non-small cell lung cancer metastatic [Not Recovered/Not Resolved]
  - Aphasia [Unknown]

NARRATIVE: CASE EVENT DATE: 2013
